FAERS Safety Report 17697309 (Version 3)
Quarter: 2020Q2

REPORT INFORMATION
  Report Type: Spontaneous
  Country: US (occurrence: US)
  Receive Date: 20200423
  Receipt Date: 20200629
  Transmission Date: 20200714
  Serious: No
  Sender: FDA-Public Use
  Company Number: US-GILEAD-2020-0459876

PATIENT
  Sex: Male

DRUGS (3)
  1. DORZOLAMIDE HYDROCHLORIDE. [Concomitant]
     Active Substance: DORZOLAMIDE HYDROCHLORIDE
  2. LATANOPROST. [Concomitant]
     Active Substance: LATANOPROST
  3. EPCLUSA [Suspect]
     Active Substance: SOFOSBUVIR\VELPATASVIR
     Indication: CHRONIC HEPATITIS C
     Dosage: 1 DOSAGE FORM, QD
     Route: 048
     Dates: start: 20200401, end: 20200623

REACTIONS (8)
  - Incorrect product administration duration [Recovered/Resolved]
  - Product packaging quantity issue [Recovered/Resolved]
  - Abdominal discomfort [Not Recovered/Not Resolved]
  - Gastrointestinal disorder [Unknown]
  - Dyspepsia [Not Recovered/Not Resolved]
  - Anxiety [Recovered/Resolved]
  - Rash [Recovered/Resolved]
  - Depression [Recovered/Resolved]
